FAERS Safety Report 16340243 (Version 4)
Quarter: 2019Q3

REPORT INFORMATION
  Report Type: Spontaneous
  Country: JP (occurrence: JP)
  Receive Date: 20190522
  Receipt Date: 20190812
  Transmission Date: 20191004
  Serious: Yes (Other)
  Sender: FDA-Public Use
  Company Number: JP-AMGEN-JPNSP2019078667

PATIENT
  Age: 68 Year
  Sex: Male
  Weight: 66 kg

DRUGS (4)
  1. KYPROLIS [Suspect]
     Active Substance: CARFILZOMIB
     Indication: PLASMA CELL MYELOMA
     Dosage: 35 MILLIGRAM, EVERYDAY
     Route: 041
     Dates: start: 20180802, end: 20180803
  2. KYPROLIS [Suspect]
     Active Substance: CARFILZOMIB
     Dosage: 70 MILLIGRAM
     Route: 041
  3. KYPROLIS [Suspect]
     Active Substance: CARFILZOMIB
     Dosage: 100 MILLIGRAM
     Route: 041
     Dates: start: 20180809
  4. DECADRON [DEXAMETHASONE SODIUM PHOSPHATE] [Concomitant]
     Indication: PLASMA CELL MYELOMA
     Dosage: 20 MILLIGRAM, EVERYDAY
     Route: 048
     Dates: start: 20180803

REACTIONS (2)
  - Hypertension [Recovering/Resolving]
  - Brain natriuretic peptide increased [Recovering/Resolving]

NARRATIVE: CASE EVENT DATE: 20181024
